FAERS Safety Report 18952025 (Version 1)
Quarter: 2021Q1

REPORT INFORMATION
  Report Type: Spontaneous
  Country: GB (occurrence: GB)
  Receive Date: 20210301
  Receipt Date: 20210301
  Transmission Date: 20210420
  Serious: Yes (Disabling, Other)
  Sender: FDA-Public Use
  Company Number: GB-ADVANZ PHARMA-202102001356

PATIENT

DRUGS (3)
  1. FOSTAIR [Concomitant]
     Active Substance: BECLOMETHASONE\FORMOTEROL
     Indication: ILL-DEFINED DISORDER
     Dosage: UNK
     Dates: start: 20120101, end: 20210212
  2. PREDNISOLONE. [Suspect]
     Active Substance: PREDNISOLONE
     Indication: RASH
     Dosage: 5 MG TABLETS,  X6 FOR 5 DAYS, TAPERING BY 1 TABLET EVERY 5 DAYS
     Route: 048
     Dates: start: 20201214, end: 20210105
  3. BETNOVATE [Suspect]
     Active Substance: BETAMETHASONE
     Indication: ECZEMA
     Dosage: 30 G
     Route: 061
     Dates: start: 20110101, end: 20201215

REACTIONS (3)
  - Medication error [Unknown]
  - Dry skin [Recovering/Resolving]
  - Rash [Recovering/Resolving]

NARRATIVE: CASE EVENT DATE: 20200801
